FAERS Safety Report 4340072-6 (Version None)
Quarter: 2004Q2

REPORT INFORMATION
  Report Type: 
  Country: None (occurrence: None)
  Receive Date: 20040415
  Receipt Date: 20040415
  Transmission Date: 20050107
  Serious: Yes (Hospitalization)
  Sender: FDA-Public Use
  Company Number: None

PATIENT
  Age: 73 Year
  Sex: Male
  Weight: 75.5 kg

DRUGS (5)
  1. WARFARIN SODIUM [Suspect]
     Indication: INTRACARDIAC THROMBUS
     Dosage: 5 MG DAILY ORAL
     Route: 048
     Dates: start: 20031012, end: 20031212
  2. ASPIRIN [Suspect]
     Indication: CORONARY ARTERY DISEASE
     Dosage: 81 MG DAILY ORAL
     Route: 048
     Dates: start: 20031012, end: 20031212
  3. PLAVIX [Concomitant]
  4. COREG [Concomitant]
  5. DIGOXIN [Concomitant]

REACTIONS (1)
  - LOWER GASTROINTESTINAL HAEMORRHAGE [None]
